FAERS Safety Report 16541866 (Version 1)
Quarter: 2019Q3

REPORT INFORMATION
  Report Type: Spontaneous
  Country: US (occurrence: US)
  Receive Date: 20190708
  Receipt Date: 20190708
  Transmission Date: 20191004
  Serious: Yes (Hospitalization)
  Sender: FDA-Public Use
  Company Number: US-CELGENEUS-USA-20190611252

PATIENT
  Sex: Male

DRUGS (2)
  1. TRIAMCINOLONE TOPICAL [Concomitant]
     Indication: DRY SKIN
     Route: 065
  2. OTEZLA [Suspect]
     Active Substance: APREMILAST
     Indication: PSORIASIS
     Dosage: 60 MILLIGRAM
     Route: 048
     Dates: start: 20141017

REACTIONS (2)
  - Road traffic accident [Not Recovered/Not Resolved]
  - Psoriasis [Not Recovered/Not Resolved]
